FAERS Safety Report 6479082-1 (Version None)
Quarter: 2009Q4

REPORT INFORMATION
  Report Type: 
  Country: None (occurrence: None)
  Receive Date: 20091207
  Receipt Date: 20090212
  Transmission Date: 20100525
  Serious: No
  Sender: FDA-Public Use
  Company Number: US-AMGEN-KDL333725

PATIENT
  Sex: Male

DRUGS (1)
  1. ENBREL [Suspect]
     Indication: PSORIASIS
     Dates: start: 20040701

REACTIONS (4)
  - GASTROENTERITIS VIRAL [None]
  - MELANOCYTIC NAEVUS [None]
  - NASOPHARYNGITIS [None]
  - TOOTH DISORDER [None]
